FAERS Safety Report 23030474 (Version 1)
Quarter: 2023Q4

REPORT INFORMATION
  Report Type: Spontaneous
  Country: US (occurrence: US)
  Receive Date: 20231005
  Receipt Date: 20231005
  Transmission Date: 20240110
  Serious: Yes (Hospitalization)
  Sender: FDA-Public Use
  Company Number: US-SANDOZ-SDZ2023US036604

PATIENT
  Sex: Female

DRUGS (3)
  1. TACROLIMUS [Suspect]
     Active Substance: TACROLIMUS
     Indication: Product used for unknown indication
     Route: 065
  2. CELLCEPT [Concomitant]
     Active Substance: MYCOPHENOLATE MOFETIL
     Indication: Product used for unknown indication
     Route: 065
  3. MYFORTIC [Concomitant]
     Active Substance: MYCOPHENOLATE SODIUM
     Indication: Product used for unknown indication
     Route: 065

REACTIONS (13)
  - Food poisoning [Unknown]
  - Vomiting [Unknown]
  - Diarrhoea [Unknown]
  - Night sweats [Unknown]
  - Hangover [Unknown]
  - Hyperthermia [Unknown]
  - Chills [Unknown]
  - Eye irritation [Unknown]
  - Abdominal discomfort [Unknown]
  - Heart rate increased [Unknown]
  - Tremor [Unknown]
  - Headache [Unknown]
  - Vision blurred [Unknown]
